FAERS Safety Report 21044372 (Version 1)
Quarter: 2022Q3

REPORT INFORMATION
  Report Type: Spontaneous
  Country: US (occurrence: None)
  Receive Date: 20220703
  Receipt Date: 20220703
  Transmission Date: 20221027
  Serious: Yes (Other)
  Sender: FDA-Public Use
  Company Number: None

PATIENT
  Age: 63 Year
  Sex: Female
  Weight: 67.5 kg

DRUGS (13)
  1. TRINTELLIX [Suspect]
     Active Substance: VORTIOXETINE HYDROBROMIDE
     Indication: Depression
     Dosage: 1 TABLET AT THE BEDTIME ORAL
     Route: 048
     Dates: start: 20200528, end: 20220528
  2. TRINTELLIX [Suspect]
     Active Substance: VORTIOXETINE HYDROBROMIDE
     Indication: Anxiety
  3. DEVICE [Concomitant]
     Active Substance: DEVICE
  4. INSULIN NOS [Concomitant]
     Active Substance: INSULIN NOS
  5. LEVOTHROID [Concomitant]
     Active Substance: LEVOTHYROXINE SODIUM
  6. ZETIA [Concomitant]
     Active Substance: EZETIMIBE
  7. OLMESARTAN [Concomitant]
     Active Substance: OLMESARTAN
  8. Provical [Concomitant]
  9. BUPROPION [Concomitant]
     Active Substance: BUPROPION
  10. CLONIDINE [Concomitant]
     Active Substance: CLONIDINE
  11. Turmic [Concomitant]
  12. diabetes pack vitamins [Concomitant]
  13. PROBIOTICS NOS [Concomitant]
     Active Substance: PROBIOTICS NOS

REACTIONS (3)
  - Anorgasmia [None]
  - Sexual dysfunction [None]
  - Frustration tolerance decreased [None]

NARRATIVE: CASE EVENT DATE: 20220528
